FAERS Safety Report 12961107 (Version 2)
Quarter: 2017Q1

REPORT INFORMATION
  Report Type: Spontaneous
  Country: US (occurrence: US)
  Receive Date: 20161121
  Receipt Date: 20170113
  Transmission Date: 20170428
  Serious: No
  Sender: FDA-Public Use
  Company Number: US-PFIZER INC-2016539006

PATIENT
  Age: 64 Year
  Sex: Male
  Weight: 89 kg

DRUGS (1)
  1. VIAGRA [Suspect]
     Active Substance: SILDENAFIL CITRATE
     Indication: ERECTILE DYSFUNCTION
     Dosage: 100MG, TABLET, ORAL, TWICE A WEEK OR THREE TIMES A WEEK.
     Route: 048

REACTIONS (2)
  - Back pain [Recovering/Resolving]
  - Road traffic accident [Unknown]

NARRATIVE: CASE EVENT DATE: 20161116
